FAERS Safety Report 6603121-8 (Version None)
Quarter: 2010Q1

REPORT INFORMATION
  Report Type: 
  Country: None (occurrence: None)
  Receive Date: 20100226
  Receipt Date: 20100217
  Transmission Date: 20100710
  Serious: Yes (Hospitalization)
  Sender: FDA-Public Use
  Company Number: US-JNJFOC-20091205844

PATIENT
  Sex: Female
  Weight: 69.31 kg

DRUGS (2)
  1. REMICADE [Suspect]
     Indication: PSORIATIC ARTHROPATHY
     Route: 042
  2. METHOTREXATE [Concomitant]
     Indication: PSORIATIC ARTHROPATHY
     Route: 048

REACTIONS (4)
  - LUNG INFILTRATION [None]
  - PERICARDIAL EFFUSION [None]
  - PLEURITIC PAIN [None]
  - RESPIRATORY MONILIASIS [None]
